FAERS Safety Report 23153082 (Version 1)
Quarter: 2023Q4

REPORT INFORMATION
  Report Type: Spontaneous
  Country: GB (occurrence: GB)
  Receive Date: 20231107
  Receipt Date: 20231107
  Transmission Date: 20240110
  Serious: Yes (Hospitalization)
  Sender: FDA-Public Use
  Company Number: GB-MYLANLABS-2023M1116988

PATIENT
  Age: 64 Year
  Sex: Female

DRUGS (8)
  1. MYCOPHENOLATE MOFETIL [Suspect]
     Active Substance: MYCOPHENOLATE MOFETIL
     Indication: Immune thrombocytopenia
     Dosage: 1 GRAM, BID; FROM DAY 13 TO DAY 66
     Route: 065
  2. MYCOPHENOLATE MOFETIL [Suspect]
     Active Substance: MYCOPHENOLATE MOFETIL
     Indication: Thrombotic thrombocytopenic purpura
  3. CAPLACIZUMAB [Suspect]
     Active Substance: CAPLACIZUMAB
     Indication: Immune thrombocytopenia
     Dosage: 10 MILLIGRAM, QD; GIVEN AT DAY 7
     Route: 058
  4. CAPLACIZUMAB [Suspect]
     Active Substance: CAPLACIZUMAB
     Indication: Thrombotic thrombocytopenic purpura
  5. METHYLPREDNISOLONE [Concomitant]
     Active Substance: METHYLPREDNISOLONE
     Indication: Immune thrombocytopenia
     Dosage: 1 GRAM, QD; FROM DAY 1 TO DAY 3
     Route: 065
  6. METHYLPREDNISOLONE [Concomitant]
     Active Substance: METHYLPREDNISOLONE
     Indication: Thrombotic thrombocytopenic purpura
  7. RITUXIMAB [Concomitant]
     Active Substance: RITUXIMAB
     Indication: Immune thrombocytopenia
     Dosage: 375 MILLIGRAM/SQ. METER, Q3D; FOUR DOSES FROM DAY 2
     Route: 065
  8. RITUXIMAB [Concomitant]
     Active Substance: RITUXIMAB
     Indication: Thrombotic thrombocytopenic purpura

REACTIONS (2)
  - Drug ineffective for unapproved indication [Unknown]
  - Off label use [Unknown]
